FAERS Safety Report 5321536-5 (Version None)
Quarter: 2007Q2

REPORT INFORMATION
  Report Type: 
  Country: None (occurrence: None)
  Receive Date: 20070220
  Receipt Date: 20061117
  Transmission Date: 20071010
  Serious: No
  Sender: FDA-Public Use
  Company Number: TPA2006A01963

PATIENT
  Age: 14 Year
  Sex: Male
  Weight: 89.8122 kg

DRUGS (4)
  1. ROZEREM [Suspect]
     Indication: DELAYED SLEEP PHASE
     Dosage: 8 MG, QHS, PER ORAL
     Route: 048
     Dates: start: 20060401, end: 20061017
  2. AMBIEN CR [Suspect]
     Indication: DELAYED SLEEP PHASE
     Dosage: 10 MG, AS REQUIRED, PER ORAL
     Route: 048
     Dates: start: 20060901, end: 20061004
  3. SONATA [Suspect]
     Indication: DELAYED SLEEP PHASE
     Dosage: 5 MG AS REQUIRED, PER ORAL
     Route: 048
     Dates: start: 20061004, end: 20061021
  4. PROVIGIL [Concomitant]

REACTIONS (5)
  - ANXIETY [None]
  - FEELING DRUNK [None]
  - INITIAL INSOMNIA [None]
  - MEMORY IMPAIRMENT [None]
  - SOMNOLENCE [None]
